FAERS Safety Report 4621334-1 (Version None)
Quarter: 2005Q1

REPORT INFORMATION
  Report Type: 
  Country: None (occurrence: None)
  Receive Date: 20050324
  Receipt Date: 20050324
  Transmission Date: 20050727
  Serious: Yes (Other)
  Sender: FDA-Public Use
  Company Number: None

PATIENT
  Sex: Male

DRUGS (1)
  1. KEFLEX [Suspect]
     Dosage: 500 MG  TID  ORAL
     Route: 048
     Dates: start: 20031023, end: 20031026

REACTIONS (2)
  - RASH [None]
  - URTICARIA [None]
